FAERS Safety Report 5373831-1 (Version None)
Quarter: 2007Q2

REPORT INFORMATION
  Report Type: 
  Country: None (occurrence: None)
  Receive Date: 20070628
  Receipt Date: 20070618
  Transmission Date: 20071010
  Serious: Yes (Death)
  Sender: FDA-Public Use
  Company Number: JP-PFIZER INC-2007019033

PATIENT
  Age: 70 Year
  Sex: Male

DRUGS (3)
  1. VFEND [Suspect]
     Route: 042
     Dates: start: 20060817, end: 20060817
  2. VFEND [Suspect]
     Route: 042
  3. MICAFUNGIN [Concomitant]
     Route: 042
     Dates: start: 20060814, end: 20060817

REACTIONS (1)
  - MYELODYSPLASTIC SYNDROME [None]
